FAERS Safety Report 22044871 (Version 2)
Quarter: 2023Q2

REPORT INFORMATION
  Report Type: Report from Study
  Country: GB (occurrence: GB)
  Receive Date: 20230228
  Receipt Date: 20230502
  Transmission Date: 20230722
  Serious: Yes (Death, Life-Threatening)
  Sender: FDA-Public Use
  Company Number: GB-002147023-NVSC2023GB042377

PATIENT
  Age: 61 Year
  Sex: Male
  Weight: 93.7 kg

DRUGS (3)
  1. PLACEBO [Suspect]
     Active Substance: UNSPECIFIED INGREDIENT
     Indication: Secondary progressive multiple sclerosis
     Dosage: 2 MG, QD (ONCE DAILY)
     Route: 048
     Dates: start: 20140624, end: 20141216
  2. SIPONIMOD [Suspect]
     Active Substance: SIPONIMOD
     Indication: Secondary progressive multiple sclerosis
     Dosage: 2 MG, QD (ONCE, DAILY)
     Route: 048
     Dates: start: 20170221, end: 20230106
  3. MEROPENEM [Concomitant]
     Active Substance: MEROPENEM
     Indication: Urinary tract infection
     Dosage: UNK
     Route: 065
     Dates: start: 20230117

REACTIONS (3)
  - Pneumonia [Recovered/Resolved]
  - Small cell lung cancer [Fatal]
  - Metastases to liver [Fatal]

NARRATIVE: CASE EVENT DATE: 20230104
